FAERS Safety Report 8233675 (Version 5)
Quarter: 2014Q1

REPORT INFORMATION
  Report Type: Report from Study
  Country: BR (occurrence: BR)
  Receive Date: 20111107
  Receipt Date: 20140107
  Transmission Date: 20141002
  Serious: Yes (Other)
  Sender: FDA-Public Use
  Company Number: BR-ROCHE-1007294

PATIENT
  Age: 66 Year
  Sex: Female

DRUGS (7)
  1. XOLAIR [Suspect]
     Indication: ASTHMA
     Route: 065
     Dates: start: 201009
  2. XOLAIR [Suspect]
     Route: 065
  3. XOLAIR [Suspect]
     Route: 065
     Dates: start: 2010
  4. XOLAIR [Suspect]
     Dosage: 2 AMPOULES
     Route: 065
     Dates: start: 20110627
  5. XOLAIR [Suspect]
     Route: 065
     Dates: start: 20110823
  6. XOLAIR [Suspect]
     Route: 065
     Dates: start: 20110917
  7. FRONTAL [Concomitant]

REACTIONS (22)
  - Road traffic accident [Not Recovered/Not Resolved]
  - Back pain [Not Recovered/Not Resolved]
  - Dyspnoea [Recovered/Resolved]
  - Vomiting [Unknown]
  - Tremor [Unknown]
  - Hyperhidrosis [Unknown]
  - Feeling cold [Unknown]
  - Crying [Unknown]
  - Abdominal pain [Not Recovered/Not Resolved]
  - Pharyngeal disorder [Unknown]
  - Cough [Not Recovered/Not Resolved]
  - Drug dispensing error [Unknown]
  - Underdose [Unknown]
  - Spinal pain [Not Recovered/Not Resolved]
  - Respiratory tract congestion [Recovered/Resolved]
  - Hypersensitivity [Recovering/Resolving]
  - Sneezing [Recovering/Resolving]
  - Rhinorrhoea [Recovering/Resolving]
  - Wheezing [Recovering/Resolving]
  - Nasal discomfort [Recovering/Resolving]
  - Fatigue [Recovering/Resolving]
  - Weight decreased [Unknown]
